FAERS Safety Report 12578513 (Version 1)
Quarter: 2016Q3

REPORT INFORMATION
  Report Type: Report from Study
  Country: US (occurrence: US)
  Receive Date: 20160721
  Receipt Date: 20160721
  Transmission Date: 20161109
  Serious: Yes (Hospitalization)
  Sender: FDA-Public Use
  Company Number: US-ROCHE-1017271

PATIENT
  Age: 78 Year
  Sex: Female
  Weight: 78.7 kg

DRUGS (2)
  1. RO 4929097 (GAMMA SECRETASE INHIBITOR) [Suspect]
     Active Substance: INVESTIGATIONAL PRODUCT
     Indication: LIPOSARCOMA
     Dosage: DOSE WAS HELD. RO4929097: 15 MG PO QD
     Route: 048
     Dates: start: 20110901, end: 20111028
  2. VISMODEGIB [Suspect]
     Active Substance: VISMODEGIB
     Indication: LIPOSARCOMA
     Dosage: DOSE HELD, CYCLE 21 DAYS,GDC-0449 150 MG PO QD
     Route: 048
     Dates: start: 20110901, end: 20111028

REACTIONS (9)
  - Hypocalcaemia [None]
  - Blood alkaline phosphatase increased [None]
  - International normalised ratio increased [None]
  - Hyperglycaemia [None]
  - Anaemia [Recovered/Resolved]
  - Hypoalbuminaemia [None]
  - Retroperitoneal haemorrhage [Recovered/Resolved]
  - Vomiting [None]
  - Hyperkalaemia [None]

NARRATIVE: CASE EVENT DATE: 20111028
